FAERS Safety Report 18636900 (Version 3)
Quarter: 2021Q3

REPORT INFORMATION
  Report Type: Spontaneous
  Country: DE (occurrence: DE)
  Receive Date: 20201219
  Receipt Date: 20210918
  Transmission Date: 20211014
  Serious: Yes (Life-Threatening, Hospitalization, Other)
  Sender: FDA-Public Use
  Company Number: DE-AUROBINDO-AUR-APL-2020-017212

PATIENT
  Age: 72 Year
  Sex: Female

DRUGS (5)
  1. NADROPARIN [Concomitant]
     Active Substance: NADROPARIN
     Indication: EMBOLISM
     Dosage: 2850 INTERNATIONAL UNIT, ONCE A DAY (ONCE IN THE EVENING)
     Route: 059
     Dates: start: 20200221, end: 20200224
  2. TILIDIN [Concomitant]
     Active Substance: NALOXONE HYDROCHLORIDE\TILIDINE HYDROCHLORIDE
     Indication: PAIN
     Dosage: UNK, TWO TIMES A DAY
     Route: 048
     Dates: start: 20191221
  3. LETROZOLE. [Suspect]
     Active Substance: LETROZOLE
     Indication: BREAST CANCER METASTATIC
     Dosage: 2.5 MILLIGRAM, ONCE A DAY
     Route: 048
     Dates: start: 20191221
  4. KISQALI [Suspect]
     Active Substance: RIBOCICLIB
     Indication: BREAST CANCER METASTATIC
  5. KISQALI [Suspect]
     Active Substance: RIBOCICLIB
     Indication: BREAST CANCER
     Dosage: 600 MILLIGRAM, ONCE A DAY
     Route: 048
     Dates: start: 20191221, end: 20200113

REACTIONS (9)
  - Abdominal pain [Recovered/Resolved]
  - Decreased appetite [Recovered/Resolved]
  - Neutrophil count decreased [Recovered/Resolved]
  - Vomiting [Recovered/Resolved]
  - Ileus [Recovered/Resolved]
  - Anaemia [Not Recovered/Not Resolved]
  - Nausea [Recovered/Resolved]
  - Cough [Recovered/Resolved]
  - Constipation [Recovered/Resolved]

NARRATIVE: CASE EVENT DATE: 20200117
